FAERS Safety Report 5443031-5 (Version None)
Quarter: 2007Q3

REPORT INFORMATION
  Report Type: 
  Country: None (occurrence: None)
  Receive Date: 20070822
  Receipt Date: 20070813
  Transmission Date: 20080115
  Serious: Yes (Disabling)
  Sender: FDA-Public Use
  Company Number: GAM-075-07-AU

PATIENT
  Sex: Male

DRUGS (6)
  1. OCTAGAM [Suspect]
     Indication: IDIOPATHIC THROMBOCYTOPENIC PURPURA
     Dosage: 60 G, I.V.
     Route: 042
     Dates: start: 20070608, end: 20070808
  2. ATENOLOL [Concomitant]
  3. CANDESARTAN (CANDESARTAN) [Concomitant]
  4. METFORMIN HCL [Concomitant]
  5. PANTOPRAZOLE SODIUM [Concomitant]
  6. PREDNISOLONE [Concomitant]

REACTIONS (3)
  - DYSPHASIA [None]
  - INFUSION RELATED REACTION [None]
  - PLATELET COUNT ABNORMAL [None]
